FAERS Safety Report 19293947 (Version 1)
Quarter: 2021Q2

REPORT INFORMATION
  Report Type: Spontaneous
  Country: US (occurrence: US)
  Receive Date: 20210524
  Receipt Date: 20210524
  Transmission Date: 20210717
  Serious: No
  Sender: FDA-Public Use
  Company Number: None

PATIENT
  Age: 72 Year
  Sex: Female

DRUGS (1)
  1. EPCLUSA [Suspect]
     Active Substance: SOFOSBUVIR\VELPATASVIR
     Dosage: OTHER DOSE:400/100;?
     Route: 048
     Dates: start: 20210424

REACTIONS (3)
  - Mantle cell lymphoma [None]
  - Therapy interrupted [None]
  - Contraindicated product administered [None]

NARRATIVE: CASE EVENT DATE: 20210517
